FAERS Safety Report 12084851 (Version 1)
Quarter: 2016Q1

REPORT INFORMATION
  Report Type: Spontaneous
  Country: US (occurrence: US)
  Receive Date: 20160217
  Receipt Date: 20160217
  Transmission Date: 20160526
  Serious: Yes (Other)
  Sender: FDA-Public Use
  Company Number: US-BAYER-2016-028412

PATIENT
  Age: 76 Year
  Sex: Male
  Weight: 83.9 kg

DRUGS (1)
  1. AFRIN NO DRIP ORIGINAL PUMP MIST [Suspect]
     Active Substance: OXYMETAZOLINE HYDROCHLORIDE
     Dosage: 2 DF, BID
     Route: 045

REACTIONS (2)
  - Product use issue [None]
  - Drug dependence [None]
